FAERS Safety Report 9094597 (Version 3)
Quarter: 2013Q3

REPORT INFORMATION
  Report Type: Spontaneous
  Country: US (occurrence: US)
  Receive Date: 20130204
  Receipt Date: 20130725
  Transmission Date: 20140515
  Serious: Yes (Hospitalization)
  Sender: FDA-Public Use
  Company Number: US-009507513-1301USA013253

PATIENT
  Age: 57 Year
  Sex: Female
  Weight: 108.84 kg

DRUGS (2)
  1. PEGINTRON [Suspect]
     Indication: HEPATITIS C
     Dosage: 150 MICROGRAM, QW
     Dates: start: 20121128, end: 20130201
  2. REBETOL [Suspect]
     Dosage: UNK
     Route: 048
     Dates: start: 20121128, end: 20130201

REACTIONS (10)
  - Hysterectomy [Not Recovered/Not Resolved]
  - Transient ischaemic attack [Recovering/Resolving]
  - Hepatic cirrhosis [Unknown]
  - Injection site extravasation [Not Recovered/Not Resolved]
  - Incorrect dose administered [Unknown]
  - Product quality issue [Unknown]
  - Accidental exposure to product [Unknown]
  - Diarrhoea [Recovered/Resolved]
  - Asthenia [Recovered/Resolved]
  - Liver disorder [Recovered/Resolved]
